FAERS Safety Report 7879456-8 (Version None)
Quarter: 2011Q4

REPORT INFORMATION
  Report Type: 
  Country: None (occurrence: None)
  Receive Date: 20111101
  Receipt Date: 20111024
  Transmission Date: 20120403
  Serious: Yes (Death, Other)
  Sender: FDA-Public Use
  Company Number: US-BAYER-200943343NA

PATIENT
  Age: 59 Year
  Sex: Male
  Weight: 96 kg

DRUGS (25)
  1. ENBREL [Concomitant]
     Dosage: UNK
     Route: 058
     Dates: start: 20030101
  2. ACETAMINOPHEN [Concomitant]
     Dosage: UNK
     Route: 048
  3. HEPARIN [Concomitant]
     Dosage: 29,000 U
     Route: 042
     Dates: start: 20050922
  4. TRASYLOL [Suspect]
     Indication: AORTIC VALVE REPLACEMENT
     Dosage: 1ML INITIAL TEST DOSE, 200ML PUMP PRIME, THEN 50ML/HR (100ML TOTAL FROM DRIP)
     Route: 042
     Dates: start: 20050922, end: 20050922
  5. METHOTREXATE [Concomitant]
     Dosage: 25 MG, BID
     Route: 048
  6. LOVENOX [Concomitant]
     Dosage: 1 MG/KG, BID
     Route: 058
     Dates: start: 20050816, end: 20050818
  7. PREDNISONE [Concomitant]
     Route: 048
  8. DIPRIVAN [Concomitant]
     Dosage: 50 MG, UNK
     Route: 042
     Dates: start: 20050922
  9. AMIODARONE HCL [Concomitant]
     Dosage: 150 MG, UNK
     Route: 042
     Dates: start: 20050922
  10. NITROGLYCERIN [Concomitant]
     Dosage: UNK
     Route: 042
     Dates: start: 20050922
  11. EPINEPHRINE [Concomitant]
     Dosage: UNK
     Route: 042
     Dates: start: 20050922
  12. PROTAMINE SULFATE [Concomitant]
     Dosage: 50 MG, UNK
     Route: 042
     Dates: start: 20050922
  13. FENTANYL-100 [Concomitant]
     Dosage: 15 ML, UNK
     Route: 042
     Dates: start: 20050922
  14. MIDAZOLAM HCL [Concomitant]
     Dosage: 10 MG, UNK
     Route: 042
     Dates: start: 20050922
  15. FORANE [Concomitant]
     Dosage: INHALED
     Dates: start: 20050922
  16. LISINOPRIL [Concomitant]
     Dosage: 5 MG, BID
     Route: 048
  17. VICODIN [Concomitant]
     Dosage: UNK
     Route: 048
  18. LASIX [Concomitant]
     Dosage: 60 MG, UNK
     Route: 042
     Dates: start: 20050922
  19. PLATELETS [Concomitant]
     Dosage: 490 ML, UNK
     Route: 042
     Dates: start: 20050922
  20. COUMADIN [Concomitant]
     Dosage: 5 MG, UNK
     Route: 048
  21. TOPROL-XL [Concomitant]
     Dosage: 100 MG, UNK
     Route: 048
  22. EPHEDRINE SUL CAP [Concomitant]
     Dosage: UNK
     Route: 042
     Dates: start: 20050922
  23. NORVASC [Concomitant]
     Dosage: 5 MG, BID
     Route: 048
  24. TRASYLOL [Suspect]
     Indication: MITRAL VALVE REPLACEMENT
  25. PRECEDEX [Concomitant]
     Dosage: UNK
     Route: 042
     Dates: start: 20050922

REACTIONS (9)
  - RENAL FAILURE [None]
  - RENAL FAILURE ACUTE [None]
  - INJURY [None]
  - MULTI-ORGAN FAILURE [None]
  - PAIN [None]
  - DEATH [None]
  - EMOTIONAL DISTRESS [None]
  - UNEVALUABLE EVENT [None]
  - ANXIETY [None]
